FAERS Safety Report 8045598-X (Version None)
Quarter: 2012Q1

REPORT INFORMATION
  Report Type: 
  Country: None (occurrence: None)
  Receive Date: 20120112
  Receipt Date: 20120112
  Transmission Date: 20120608
  Serious: Yes (Other)
  Sender: FDA-Public Use
  Company Number: None

PATIENT
  Age: 63 Year
  Sex: Female
  Weight: 68.0396 kg

DRUGS (1)
  1. BOTOX [Suspect]
     Dosage: 12 DONE 3 TIMES 1 TIME 2011 IN JULY 2011
     Dates: start: 20110328

REACTIONS (2)
  - DYSKINESIA [None]
  - NEURALGIA [None]
